FAERS Safety Report 9665432 (Version 1)
Quarter: 2013Q4

REPORT INFORMATION
  Report Type: Spontaneous
  Country: US (occurrence: None)
  Receive Date: 20131031
  Receipt Date: 20131031
  Transmission Date: 20140711
  Serious: Yes (Hospitalization)
  Sender: FDA-Public Use
  Company Number: None

PATIENT
  Age: 38 Year
  Sex: Male
  Weight: 67.13 kg

DRUGS (1)
  1. MELOXICAM [Suspect]
     Indication: ARTHRITIS
     Dosage: I WAS GIVEN TO SHEETS OF 2 PILLS, TAKE ONE TABLET  ORALLY ONCE DAILY
     Route: 048
     Dates: start: 201301, end: 20130416

REACTIONS (2)
  - Gastric disorder [None]
  - Ulcer [None]
